FAERS Safety Report 6599787-1 (Version None)
Quarter: 2010Q1

REPORT INFORMATION
  Report Type: 
  Country: None (occurrence: None)
  Receive Date: 20100224
  Receipt Date: 20100218
  Transmission Date: 20100710
  Serious: Yes (Hospitalization)
  Sender: FDA-Public Use
  Company Number: PHHO2009HU15733

PATIENT
  Sex: Male
  Weight: 104 kg

DRUGS (1)
  1. AFINITOR [Suspect]
     Indication: METASTATIC RENAL CELL CARCINOMA
     Dosage: 10 MG DAILY
     Route: 048
     Dates: start: 20090825, end: 20090929

REACTIONS (5)
  - ANGIOEDEMA [None]
  - BLOOD CREATININE INCREASED [None]
  - DYSPNOEA [None]
  - LOCAL SWELLING [None]
  - SWOLLEN TONGUE [None]
